FAERS Safety Report 23909177 (Version 1)
Quarter: 2024Q2

REPORT INFORMATION
  Report Type: Spontaneous
  Country: US (occurrence: None)
  Receive Date: 20240524
  Receipt Date: 20240524
  Transmission Date: 20240716
  Serious: No
  Sender: FDA-Public Use
  Company Number: None

PATIENT

DRUGS (1)
  1. CARDIZEM [Suspect]
     Active Substance: DILTIAZEM HYDROCHLORIDE

REACTIONS (4)
  - Product use issue [None]
  - Product supply issue [None]
  - Victim of crime [None]
  - Legal problem [None]

NARRATIVE: CASE EVENT DATE: 20240204
